FAERS Safety Report 4938411-8 (Version None)
Quarter: 2006Q1

REPORT INFORMATION
  Report Type: 
  Country: None (occurrence: None)
  Receive Date: 20060302
  Receipt Date: 20060216
  Transmission Date: 20060701
  Serious: Yes (Hospitalization)
  Sender: FDA-Public Use
  Company Number: 2005EU002678

PATIENT
  Age: 59 Year
  Sex: Male

DRUGS (6)
  1. FK506(TACROLIMUS) CAPSULE [Suspect]
     Indication: LIVER TRANSPLANT
     Dosage: SEE IMAGE
     Route: 048
     Dates: start: 20050920, end: 20051009
  2. FK506(TACROLIMUS) CAPSULE [Suspect]
     Indication: LIVER TRANSPLANT
     Dosage: SEE IMAGE
     Route: 048
     Dates: start: 20051014
  3. METHYLPREDNISOLONE [Suspect]
     Indication: LIVER TRANSPLANT
     Dosage: 2 MG, UID/QD
     Dates: start: 20050920
  4. PROPRANOLOL HYDROCHLORIDE [Concomitant]
  5. OMEPRAZOLE [Concomitant]
  6. GANCICLOVIR (GANCICLOVIR) [Concomitant]

REACTIONS (4)
  - BONE MARROW FAILURE [None]
  - CULTURE URINE POSITIVE [None]
  - PROTEUS INFECTION [None]
  - PYREXIA [None]
